FAERS Safety Report 6458585-X (Version None)
Quarter: 2009Q4

REPORT INFORMATION
  Report Type: 
  Country: None (occurrence: None)
  Receive Date: 20091126
  Receipt Date: 20091119
  Transmission Date: 20100525
  Serious: Yes (Other)
  Sender: FDA-Public Use
  Company Number: ES-BRISTOL-MYERS SQUIBB COMPANY-14857742

PATIENT

DRUGS (1)
  1. CARBIDOPA + LEVODOPA CR [Suspect]

REACTIONS (1)
  - PARKINSON'S DISEASE [None]
